FAERS Safety Report 11376573 (Version 2)
Quarter: 2015Q3

REPORT INFORMATION
  Report Type: Spontaneous
  Country: FR (occurrence: FR)
  Receive Date: 20150813
  Receipt Date: 20150828
  Transmission Date: 20151125
  Serious: Yes (Hospitalization, Other)
  Sender: FDA-Public Use
  Company Number: FR-PFIZER INC-2015263857

PATIENT
  Age: 52 Year
  Sex: Male

DRUGS (4)
  1. LYRICA [Suspect]
     Active Substance: PREGABALIN
     Dosage: 75 MG, 2X/DAY
     Route: 048
     Dates: start: 20150612, end: 20150615
  2. AUGMENTIN [Suspect]
     Active Substance: AMOXICILLIN\CLAVULANATE POTASSIUM
     Dosage: 2 G, 3X/DAY
     Route: 042
     Dates: start: 20150605, end: 20150615
  3. SERESTA [Suspect]
     Active Substance: OXAZEPAM
     Dosage: 2 DF OF 10 MG, 3X/DAY
     Route: 048
     Dates: start: 20150612, end: 20150615
  4. GENTAMICIN. [Concomitant]
     Active Substance: GENTAMICIN
     Dosage: ONE INJECTION
     Dates: start: 20150605, end: 20150605

REACTIONS (10)
  - Erythrosis [Recovered/Resolved]
  - Loss of consciousness [Unknown]
  - Deep vein thrombosis [Unknown]
  - Blood pressure fluctuation [Unknown]
  - Malaise [Recovered/Resolved]
  - Hypotension [Recovered/Resolved]
  - Hot flush [Recovered/Resolved]
  - Rash [Unknown]
  - Faeces soft [Unknown]
  - Abdominal pain [Unknown]

NARRATIVE: CASE EVENT DATE: 20150614
